FAERS Safety Report 10559060 (Version 3)
Quarter: 2014Q4

REPORT INFORMATION
  Report Type: Spontaneous
  Country: SK (occurrence: SK)
  Receive Date: 20141103
  Receipt Date: 20141114
  Transmission Date: 20150529
  Serious: Yes (Hospitalization, Other)
  Sender: FDA-Public Use
  Company Number: SK-ROCHE-1475871

PATIENT
  Age: 79 Year
  Sex: Female

DRUGS (8)
  1. SIMGAL [Concomitant]
  2. EBRANTIL [Concomitant]
     Active Substance: URAPIDIL
  3. LUCENTIS [Suspect]
     Active Substance: RANIBIZUMAB
     Dosage: IN RIGHT EYE
     Route: 050
     Dates: start: 20141010
  4. ENELBIN (SLOVAKIA) [Concomitant]
  5. CLOPIDOGREL [Concomitant]
     Active Substance: CLOPIDOGREL BISULFATE
  6. LUSOPRESS [Concomitant]
     Active Substance: NITRENDIPINE
  7. VALZAP H [Concomitant]
  8. LUCENTIS [Suspect]
     Active Substance: RANIBIZUMAB
     Indication: PRODUCT USED FOR UNKNOWN INDICATION
     Dosage: IN RIGHT EYE
     Route: 050
     Dates: start: 20110610

REACTIONS (5)
  - Endophthalmitis [Recovered/Resolved with Sequelae]
  - Bacterial test positive [Unknown]
  - Macular pigmentation [Unknown]
  - Vitreous haemorrhage [Unknown]
  - Eye oedema [Unknown]

NARRATIVE: CASE EVENT DATE: 20141013
